FAERS Safety Report 19960876 (Version 3)
Quarter: 2021Q4

REPORT INFORMATION
  Report Type: Spontaneous
  Country: US (occurrence: US)
  Receive Date: 20211016
  Receipt Date: 20211019
  Transmission Date: 20220303
  Serious: Yes (Hospitalization, Other)
  Sender: FDA-Public Use
  Company Number: US-UNITED THERAPEUTICS-UNT-2021-020274

PATIENT
  Age: 75 Year
  Sex: Male
  Weight: 67.12 kg

DRUGS (6)
  1. TYVASO [Suspect]
     Active Substance: TREPROSTINIL
     Indication: Pulmonary arterial hypertension
     Dosage: UNK
     Dates: start: 20210707
  2. TYVASO [Suspect]
     Active Substance: TREPROSTINIL
     Dosage: 18-54 ?G, QID
     Dates: start: 2021
  3. TYVASO [Suspect]
     Active Substance: TREPROSTINIL
     Dosage: 60-120 ?G, QID
     Dates: start: 2021
  4. TYVASO [Suspect]
     Active Substance: TREPROSTINIL
     Dosage: 72 ?G
     Dates: start: 20211002, end: 20211009
  5. TYVASO [Suspect]
     Active Substance: TREPROSTINIL
     Dosage: 66 ?G
     Dates: start: 20211009
  6. OFEV [Concomitant]
     Active Substance: NINTEDANIB
     Indication: Product used for unknown indication
     Dosage: UNK
     Route: 065

REACTIONS (15)
  - Pneumonia [Unknown]
  - Dyspnoea [Unknown]
  - Blood potassium decreased [Unknown]
  - Oxygen saturation decreased [Recovering/Resolving]
  - Hyperventilation [Unknown]
  - Muscular weakness [Unknown]
  - Hypotension [Recovering/Resolving]
  - Heart rate increased [Unknown]
  - White blood cell count decreased [Unknown]
  - Oxygen consumption increased [Recovering/Resolving]
  - Exercise tolerance decreased [Unknown]
  - Reduced facial expression [Unknown]
  - Inflammation [Unknown]
  - Wheezing [Unknown]
  - Off label use [Unknown]

NARRATIVE: CASE EVENT DATE: 20210101
